FAERS Safety Report 9201588 (Version 1)
Quarter: 2013Q2

REPORT INFORMATION
  Report Type: Spontaneous
  Country: US (occurrence: None)
  Receive Date: 20130401
  Receipt Date: 20130401
  Transmission Date: 20140414
  Serious: Yes (Hospitalization)
  Sender: FDA-Public Use
  Company Number: None

PATIENT
  Age: 85 Year
  Sex: Male
  Weight: 65 kg

DRUGS (1)
  1. WARFARIN [Suspect]
     Dosage: MG  EVERY DAY  PO
     Route: 048
     Dates: start: 20010612, end: 20130110

REACTIONS (1)
  - Haemorrhage intracranial [None]
